FAERS Safety Report 6214293-1 (Version None)
Quarter: 2009Q2

REPORT INFORMATION
  Report Type: 
  Country: None (occurrence: None)
  Receive Date: 20090529
  Receipt Date: 20090225
  Transmission Date: 20091009
  Serious: Yes (Hospitalization, Disabling)
  Sender: FDA-Public Use
  Company Number: 1-18123047

PATIENT
  Sex: Male

DRUGS (1)
  1. QUININE (MANUFACTURER UNKNOWN) [Suspect]
     Indication: MUSCLE SPASMS
     Dosage: ORAL
     Route: 048
     Dates: start: 20050101, end: 20070101

REACTIONS (3)
  - BLINDNESS [None]
  - DEAFNESS [None]
  - UNEVALUABLE EVENT [None]
